FAERS Safety Report 18676351 (Version 2)
Quarter: 2021Q1

REPORT INFORMATION
  Report Type: Spontaneous
  Country: RU (occurrence: RU)
  Receive Date: 20201229
  Receipt Date: 20210107
  Transmission Date: 20210419
  Serious: Yes (Other)
  Sender: FDA-Public Use
  Company Number: NVSC2020RU343581

PATIENT
  Age: 59 Year
  Sex: Female

DRUGS (4)
  1. GEMCITABINE. [Suspect]
     Active Substance: GEMCITABINE
     Indication: RENAL CELL CARCINOMA
     Dosage: 1000 MG/M2 (8 COURSES)
     Route: 065
     Dates: start: 20191126
  2. TRAMADOL. [Concomitant]
     Active Substance: TRAMADOL
     Indication: PAIN
     Dosage: UNK
     Route: 065
  3. CARBOPLATIN. [Suspect]
     Active Substance: CARBOPLATIN
     Indication: RENAL CELL CARCINOMA
     Dosage: AUC 5 (8 COURSES)
     Route: 065
     Dates: start: 20191126
  4. ZOLEDRONIC ACID [Suspect]
     Active Substance: ZOLEDRONIC ACID
     Indication: RENAL CELL CARCINOMA
     Dosage: 4 MG, QD (EVERY 28 DAYS, 4 COURSES)
     Route: 065
     Dates: start: 20191126, end: 20200219

REACTIONS (7)
  - Thrombocytopenia [Unknown]
  - Asthenia [Unknown]
  - Leukopenia [Unknown]
  - Product use in unapproved indication [Unknown]
  - Hepatotoxicity [Unknown]
  - Anaemia [Unknown]
  - Neuropathy peripheral [Unknown]
